FAERS Safety Report 24450545 (Version 1)
Quarter: 2024Q4

REPORT INFORMATION
  Report Type: Report from Study
  Country: CO (occurrence: CO)
  Receive Date: 20241017
  Receipt Date: 20241017
  Transmission Date: 20250114
  Serious: Yes (Death)
  Sender: ABBVIE
  Company Number: CO-JNJFOC-20241038250

PATIENT
  Sex: Female
  Weight: 50 kg

DRUGS (1)
  1. IMBRUVICA [Suspect]
     Active Substance: IBRUTINIB
     Indication: Chronic lymphocytic leukaemia
     Route: 048
     Dates: start: 20240606, end: 20240911

REACTIONS (3)
  - Leukaemia [Fatal]
  - Renal disorder [Fatal]
  - Pulmonary oedema [Fatal]
